FAERS Safety Report 8607771 (Version 3)
Quarter: 2013Q3

REPORT INFORMATION
  Report Type: Spontaneous
  Country: JP (occurrence: JP)
  Receive Date: 20120611
  Receipt Date: 20130903
  Transmission Date: 20140515
  Serious: Yes (Life-Threatening, Hospitalization, Other)
  Sender: FDA-Public Use
  Company Number: JP-SANOFI-AVENTIS-2012SA006360

PATIENT
  Age: 68 Year
  Sex: Male
  Weight: 71 kg

DRUGS (9)
  1. PLAVIX [Suspect]
     Indication: CATHETERISATION CARDIAC
     Route: 048
     Dates: start: 20120110, end: 20120117
  2. PANALDINE [Suspect]
     Indication: CATHETERISATION CARDIAC
     Dosage: ROUTE- INTERNAL USE
     Route: 048
     Dates: start: 20111227, end: 20120110
  3. ASA [Suspect]
     Indication: PRODUCT USED FOR UNKNOWN INDICATION
     Dosage: ROUTE- INTERNAL USE
  4. METFORMIN HYDROCHLORIDE [Concomitant]
  5. ROSUVASTATIN CALCIUM [Concomitant]
  6. AMARYL [Concomitant]
     Route: 048
     Dates: start: 201111, end: 201201
  7. ALLOPURINOL [Concomitant]
  8. CONIEL [Concomitant]
  9. BAYASPIRIN [Concomitant]

REACTIONS (5)
  - Hepatotoxicity [Recovering/Resolving]
  - Jaundice [Recovering/Resolving]
  - Hepatic function abnormal [Recovering/Resolving]
  - Haematuria [Recovering/Resolving]
  - Malaise [Recovering/Resolving]
